FAERS Safety Report 4559261-0 (Version None)
Quarter: 2005Q1

REPORT INFORMATION
  Report Type: 
  Country: None (occurrence: None)
  Receive Date: 20050124
  Receipt Date: 20050107
  Transmission Date: 20050727
  Serious: Yes (Other)
  Sender: FDA-Public Use
  Company Number: US-ROCHE-392178

PATIENT
  Age: 30 Year
  Sex: Female

DRUGS (5)
  1. ACCUTANE [Suspect]
     Route: 048
     Dates: start: 19981216, end: 19990422
  2. ORAL CONTRACEPTIVE PILL [Concomitant]
     Route: 048
  3. KENALOG [Concomitant]
     Indication: CYST
     Route: 026
     Dates: start: 19981104, end: 19981104
  4. MINOCYCLINE HCL [Concomitant]
     Route: 048
     Dates: start: 19981104, end: 19981216
  5. EMGEL [Concomitant]
     Route: 061
     Dates: start: 19981104, end: 19981216

REACTIONS (2)
  - DRUG EXPOSURE DURING PREGNANCY [None]
  - ECTOPIC PREGNANCY [None]
